FAERS Safety Report 9796988 (Version 1)
Quarter: 2014Q1

REPORT INFORMATION
  Report Type: Spontaneous
  Country: US (occurrence: None)
  Receive Date: 20140102
  Receipt Date: 20140102
  Transmission Date: 20141002
  Serious: Yes (Other)
  Sender: FDA-Public Use
  Company Number: None

PATIENT
  Age: 58 Year
  Sex: Male
  Weight: 81.65 kg

DRUGS (2)
  1. DULERA [Suspect]
     Indication: CHEST DISCOMFORT
     Route: 055
     Dates: start: 20131226, end: 20131231
  2. DULERA [Suspect]
     Indication: INHALATION THERAPY
     Route: 055
     Dates: start: 20131226, end: 20131231

REACTIONS (2)
  - Urticaria [None]
  - Rash generalised [None]
